FAERS Safety Report 5345879-4 (Version None)
Quarter: 2007Q2

REPORT INFORMATION
  Report Type: 
  Country: None (occurrence: None)
  Receive Date: 20070430
  Receipt Date: 20070308
  Transmission Date: 20071010
  Serious: No
  Sender: FDA-Public Use
  Company Number: 261540

PATIENT
  Age: 41 Year
  Sex: Male
  Weight: 73.5 kg

DRUGS (1)
  1. LEVEMIR [Suspect]
     Indication: DIABETES MELLITUS INSULIN-DEPENDENT
     Dosage: .42 IU, QD, SUBCUTANEOUS
     Route: 058
     Dates: start: 20070201

REACTIONS (1)
  - BLOOD GLUCOSE INCREASED [None]
